FAERS Safety Report 16085105 (Version 2)
Quarter: 2019Q2

REPORT INFORMATION
  Report Type: Spontaneous
  Country: US (occurrence: US)
  Receive Date: 20190318
  Receipt Date: 20190422
  Transmission Date: 20190711
  Serious: Yes (Hospitalization)
  Sender: FDA-Public Use
  Company Number: US-JNJFOC-20190322101

PATIENT
  Sex: Male

DRUGS (6)
  1. ZYTIGA [Suspect]
     Active Substance: ABIRATERONE ACETATE
     Indication: PRODUCT USED FOR UNKNOWN INDICATION
     Route: 048
     Dates: start: 201902
  2. METOPROLOL. [Concomitant]
     Active Substance: METOPROLOL
     Route: 065
  3. SERTRALINE [Concomitant]
     Active Substance: SERTRALINE HYDROCHLORIDE
     Indication: ANXIETY
     Route: 065
  4. LOSARTAN. [Concomitant]
     Active Substance: LOSARTAN
     Indication: BLOOD PRESSURE MANAGEMENT
     Route: 065
  5. PREDNISONE. [Concomitant]
     Active Substance: PREDNISONE
     Route: 065
  6. PANTOPRAZOLE [Concomitant]
     Active Substance: PANTOPRAZOLE
     Indication: DYSPEPSIA
     Route: 065
     Dates: start: 20190315

REACTIONS (1)
  - Internal haemorrhage [Unknown]
